FAERS Safety Report 18697902 (Version 1)
Quarter: 2021Q1

REPORT INFORMATION
  Report Type: Spontaneous
  Country: GB (occurrence: GB)
  Receive Date: 20210104
  Receipt Date: 20210104
  Transmission Date: 20210419
  Serious: Yes (Other)
  Sender: FDA-Public Use
  Company Number: GB-TEVA-2020-GB-1864321

PATIENT
  Age: 69 Year
  Sex: Female
  Weight: 61 kg

DRUGS (8)
  1. ADCAL [Concomitant]
     Dosage: PREFERABLY ONE TA. , UNIT DOSE : 2 DF
     Dates: start: 20170418
  2. SIMVASTATIN. [Concomitant]
     Active Substance: SIMVASTATIN
     Dosage: 1 DOSAGE FORMS DAILY; AT NIGHT
     Dates: start: 20200316
  3. TRIMETHOPRIM. [Suspect]
     Active Substance: TRIMETHOPRIM
     Dosage: FOR 3 DAYS , UNIT DOSE :  400 MG
     Dates: start: 20201016
  4. OMEPRAZOLE. [Concomitant]
     Active Substance: OMEPRAZOLE
     Dosage: UNIT DOSE : 1 DF
     Dates: start: 20170418
  5. ALENDRONIC ACID [Concomitant]
     Active Substance: ALENDRONIC ACID
     Dosage: AT THE SAME TIME EACH WEEK ,UNIT DOSE :  1 DF
     Dates: start: 20180524
  6. DULOXETINE. [Concomitant]
     Active Substance: DULOXETINE
     Dosage: UNIT DOSE : 1 DF
     Dates: start: 20190709
  7. RAMIPRIL. [Concomitant]
     Active Substance: RAMIPRIL
     Dosage: UNIT DOSE : 1 DF
     Dates: start: 20170418
  8. PREDNISOLONE. [Concomitant]
     Active Substance: PREDNISOLONE
     Dosage: UNIT DOSE : 3 MG
     Dates: start: 20170418

REACTIONS (1)
  - Lip swelling [Recovered/Resolved]
